FAERS Safety Report 5713363-1 (Version None)
Quarter: 2008Q2

REPORT INFORMATION
  Report Type: 
  Country: None (occurrence: None)
  Receive Date: 20080422
  Receipt Date: 20080416
  Transmission Date: 20081010
  Serious: Yes (Other)
  Sender: FDA-Public Use
  Company Number: JP-PFIZER INC-2008023889

PATIENT
  Sex: Male

DRUGS (4)
  1. CELECOX [Suspect]
     Indication: MUSCULOSKELETAL PAIN
     Dosage: DAILY DOSE:400MG
     Route: 048
     Dates: start: 20080222, end: 20080303
  2. URALYT [Concomitant]
     Indication: HYPERURICAEMIA
     Dosage: FREQ:QD
  3. ZYRTEC [Concomitant]
     Indication: RHINITIS ALLERGIC
  4. PREDNISOLONE [Concomitant]
     Route: 048
     Dates: start: 20080222

REACTIONS (6)
  - BODY TEMPERATURE INCREASED [None]
  - CHEILITIS [None]
  - RASH [None]
  - RASH GENERALISED [None]
  - STOMATITIS [None]
  - SWELLING FACE [None]
